FAERS Safety Report 5725185-6 (Version None)
Quarter: 2008Q2

REPORT INFORMATION
  Report Type: 
  Country: None (occurrence: None)
  Receive Date: 20080501
  Receipt Date: 20080428
  Transmission Date: 20081010
  Serious: Yes (Hospitalization)
  Sender: FDA-Public Use
  Company Number: A0725069A

PATIENT
  Age: 64 Year
  Sex: Male

DRUGS (4)
  1. ADVAIR HFA [Suspect]
     Indication: ASTHMA
     Route: 055
     Dates: start: 20080401
  2. CARDIZEM [Concomitant]
  3. VYTORIN [Concomitant]
  4. PLAVIX [Concomitant]

REACTIONS (7)
  - BLOOD PRESSURE INCREASED [None]
  - DRUG INEFFECTIVE [None]
  - HEADACHE [None]
  - HEART RATE IRREGULAR [None]
  - NERVOUSNESS [None]
  - PALLOR [None]
  - TREMOR [None]
